FAERS Safety Report 22898311 (Version 4)
Quarter: 2023Q4

REPORT INFORMATION
  Report Type: Report from Study
  Country: TR (occurrence: TR)
  Receive Date: 20230903
  Receipt Date: 20231213
  Transmission Date: 20240109
  Serious: Yes (Hospitalization)
  Sender: FDA-Public Use
  Company Number: TR-ABBVIE-5390525

PATIENT
  Age: 76 Year
  Sex: Male

DRUGS (3)
  1. CARBIDOPA\LEVODOPA [Suspect]
     Active Substance: CARBIDOPA\LEVODOPA
     Indication: Parkinson^s disease
     Dosage: MORNING DOSE (ML): 7.50 CONTINIOUS DOSE (ML): 1.90 EXTRA DOSE (ML): 1.00
     Route: 050
     Dates: start: 20221021
  2. CARBIDOPA\LEVODOPA [Suspect]
     Active Substance: CARBIDOPA\LEVODOPA
  3. ASPIRIN [Concomitant]
     Active Substance: ASPIRIN
     Indication: Thrombosis prophylaxis
     Dosage: FORM STRENGTH: 300 MILLIGRAM?START DATE TEXT: UNKNOWN
     Route: 048

REACTIONS (1)
  - Respiratory distress [Recovered/Resolved]

NARRATIVE: CASE EVENT DATE: 20230830
